FAERS Safety Report 7918377-9 (Version None)
Quarter: 2011Q4

REPORT INFORMATION
  Report Type: 
  Country: None (occurrence: None)
  Receive Date: 20111116
  Receipt Date: 20111110
  Transmission Date: 20120403
  Serious: Yes (Other)
  Sender: FDA-Public Use
  Company Number: US-ELI_LILLY_AND_COMPANY-US201111003865

PATIENT
  Sex: Male

DRUGS (2)
  1. CIALIS [Suspect]
     Dosage: 5 MG, QD
     Dates: start: 20111102
  2. CIALIS [Suspect]
     Indication: ERECTILE DYSFUNCTION
     Dosage: 1 DF, PRN

REACTIONS (3)
  - VENTRICULAR EXTRASYSTOLES [None]
  - RENAL IMPAIRMENT [None]
  - HYPERTENSION [None]
